FAERS Safety Report 9631525 (Version 3)
Quarter: 2014Q2

REPORT INFORMATION
  Report Type: Spontaneous
  Country: US (occurrence: US)
  Receive Date: 20131018
  Receipt Date: 20140515
  Transmission Date: 20141212
  Serious: Yes (Death, Other)
  Sender: FDA-Public Use
  Company Number: US-PFIZER INC-2013294073

PATIENT
  Age: 66 Year
  Sex: Male

DRUGS (1)
  1. XALKORI [Suspect]
     Indication: LUNG NEOPLASM MALIGNANT
     Dosage: 250 MG, TWICE DAILY
     Route: 048
     Dates: start: 20130917

REACTIONS (5)
  - Disease progression [Fatal]
  - Lung neoplasm malignant [Fatal]
  - Thrombosis [Unknown]
  - Visual impairment [Unknown]
  - Sensation of foreign body [Recovered/Resolved]
